FAERS Safety Report 7928688-9 (Version None)
Quarter: 2011Q4

REPORT INFORMATION
  Report Type: 
  Country: None (occurrence: None)
  Receive Date: 20111118
  Receipt Date: 20111107
  Transmission Date: 20120403
  Serious: Yes (Other)
  Sender: FDA-Public Use
  Company Number: FR-MYLANLABS-2011S1023140

PATIENT
  Age: 50 Year
  Sex: Male

DRUGS (4)
  1. LEVOTHYROXINE SODIUM [Suspect]
     Indication: BASEDOW'S DISEASE
     Dosage: INCREASED TO 325 MICROG (INITIAL DOSAGE UNKNOWN)
     Route: 065
  2. FOSAMPRENAVIR [Interacting]
     Indication: HIV INFECTION
     Route: 065
     Dates: start: 20060301
  3. RITONAVIR [Interacting]
     Indication: HIV INFECTION
     Route: 065
     Dates: start: 20060301
  4. NEVIRAPINE [Concomitant]
     Indication: HIV INFECTION
     Route: 065
     Dates: start: 20060301

REACTIONS (1)
  - DRUG INTERACTION [None]
